FAERS Safety Report 4336501-4 (Version None)
Quarter: 2004Q2

REPORT INFORMATION
  Report Type: 
  Country: None (occurrence: None)
  Receive Date: 20040412
  Receipt Date: 20040405
  Transmission Date: 20050107
  Serious: Yes (Hospitalization)
  Sender: FDA-Public Use
  Company Number: 200411413FR

PATIENT
  Age: 90 Year
  Sex: Male

DRUGS (3)
  1. LASILIX 40 MG [Suspect]
     Indication: ESSENTIAL HYPERTENSION
     Route: 048
     Dates: start: 20040215, end: 20040216
  2. HEMIGOXINE NATIVELLE [Suspect]
     Indication: ATRIAL FIBRILLATION
     Route: 048
     Dates: start: 20040215, end: 20040216
  3. DISTILBENE [Concomitant]
     Indication: PROSTATE CANCER
     Route: 048

REACTIONS (1)
  - ASTHMA [None]
